FAERS Safety Report 7809563-7 (Version None)
Quarter: 2011Q4

REPORT INFORMATION
  Report Type: 
  Country: None (occurrence: None)
  Receive Date: 20111012
  Receipt Date: 20111007
  Transmission Date: 20120403
  Serious: Yes (Hospitalization)
  Sender: FDA-Public Use
  Company Number: PHEH2011US05353

PATIENT
  Sex: Female
  Weight: 63.492 kg

DRUGS (21)
  1. LORTAB [Concomitant]
     Dosage: 500 MG
     Dates: start: 20110207
  2. TYLENOL-500 [Concomitant]
     Dosage: 500 MG
     Dates: start: 20110207
  3. LEVAQUIN [Concomitant]
     Dosage: 500 MG
  4. VITAMIN D [Concomitant]
     Dates: start: 20110207
  5. LORAZEPAM [Concomitant]
     Dosage: 0.5 MG
  6. LITHIUM CARBONATE [Concomitant]
     Dosage: 450 MG
     Dates: start: 20110207
  7. ZOFRAN [Concomitant]
     Dates: start: 20110207
  8. EXJADE [Suspect]
     Indication: NEOPLASM
     Dosage: 2000 MG,  DAILY
     Route: 048
     Dates: start: 20090903
  9. SEROQUEL [Concomitant]
     Dosage: 50 MG
     Dates: start: 20110207
  10. VIDAZA [Concomitant]
     Dosage: 100 MG
     Dates: start: 20110207
  11. ULTRAM [Concomitant]
     Dosage: 300 MG
     Dates: start: 20110207
  12. PROCRIT [Concomitant]
     Dates: start: 20110207
  13. LEVOTHYROXINE SODIUM [Concomitant]
  14. STOOL SOFTENER [Concomitant]
     Dosage: 100 MG,
     Dates: start: 20110207
  15. SUPER OMEGA [Concomitant]
     Dosage: 100 MG
     Dates: start: 20110207
  16. BACTRIM DS [Concomitant]
     Dosage: 160 MG
     Dates: start: 20110218
  17. AMINOCAPROIC ACID [Concomitant]
     Dates: start: 20110207
  18. TOPROL-XL [Concomitant]
     Dosage: 25 MG
     Dates: start: 20110207
  19. TRIMETHOPRIM [Concomitant]
     Dosage: 100 MG
     Dates: start: 20110207
  20. NAUPOGEN [Concomitant]
     Dates: start: 20110207
  21. GABAPENTIN [Concomitant]

REACTIONS (2)
  - INTESTINAL OBSTRUCTION [None]
  - APPENDICITIS PERFORATED [None]
